FAERS Safety Report 22049483 (Version 1)
Quarter: 2023Q1

REPORT INFORMATION
  Report Type: Spontaneous
  Country: US (occurrence: None)
  Receive Date: 20230228
  Receipt Date: 20230228
  Transmission Date: 20230418
  Serious: Yes (unspecified)
  Sender: FDA-Public Use
  Company Number: None

PATIENT
  Age: 42 Year
  Sex: Female
  Weight: 72 kg

DRUGS (3)
  1. QUETIAPINE [Suspect]
     Active Substance: QUETIAPINE
     Indication: Sleep disorder
     Dates: start: 20211110, end: 20230228
  2. PROZAC (FLUOXETINE) [Concomitant]
  3. CLONIDINE [Concomitant]
     Active Substance: CLONIDINE

REACTIONS (3)
  - Off label use [None]
  - Intraocular pressure increased [None]
  - Visual impairment [None]

NARRATIVE: CASE EVENT DATE: 20230223
